FAERS Safety Report 21134843 (Version 1)
Quarter: 2022Q3

REPORT INFORMATION
  Report Type: Spontaneous
  Country: GB (occurrence: GB)
  Receive Date: 20220727
  Receipt Date: 20220727
  Transmission Date: 20221026
  Serious: Yes (Other)
  Sender: FDA-Public Use
  Company Number: GB-MHRA-TPP46808222C6992479YC1657274782279

PATIENT
  Age: 91 Year
  Sex: Female
  Weight: 51 kg

DRUGS (12)
  1. AMLODIPINE [Suspect]
     Active Substance: AMLODIPINE BESYLATE
     Indication: Product used for unknown indication
     Dosage: 5 MILLIGRAM, ONCE A DAY
     Route: 065
     Dates: start: 20220610
  2. AVEENO [Concomitant]
     Active Substance: DIMETHICONE\HOMOSALATE\OCTINOXATE\OCTISALATE\TITANIUM DIOXIDE
     Indication: Product used for unknown indication
     Dosage: UNK UNK, AS NECESSARY(USE AS DIRECTED)
     Route: 065
     Dates: start: 20190521
  3. BRINZOLAMIDE [Concomitant]
     Active Substance: BRINZOLAMIDE
     Indication: Product used for unknown indication
     Dosage: UNK(ONE DROP TO BE USED TWICE A DAY IN THE AFFECTED...)
     Route: 065
     Dates: start: 20170815
  4. ESTRADIOL [Concomitant]
     Active Substance: ESTRADIOL
     Indication: Product used for unknown indication
     Dosage: UNK(PLACE INSIDE VAGINA DAILY FOR 2 WEEKS THEN TWIC...)
     Route: 067
     Dates: start: 20201009
  5. BECLOMETHASONE\FORMOTEROL [Concomitant]
     Active Substance: BECLOMETHASONE\FORMOTEROL
     Indication: Product used for unknown indication
     Dosage: 2 DOSAGE FORM, TWO TIMES A DAY(2 PUFFS TWICE DAILY)
     Route: 055
     Dates: start: 20161028
  6. HYALURONATE SODIUM [Concomitant]
     Active Substance: HYALURONATE SODIUM
     Indication: Product used for unknown indication
     Dosage: 1 DOSAGE FORM, FOUR TIMES/DAY
     Route: 065
     Dates: start: 20220303
  7. LANSOPRAZOLE [Concomitant]
     Active Substance: LANSOPRAZOLE
     Indication: Product used for unknown indication
     Dosage: 1 DOSAGE FORM, TWO TIMES A DAY(UNTIL SEEN AT CAMERA TEST ...)
     Route: 065
     Dates: start: 20210111
  8. LATANOPROST [Concomitant]
     Active Substance: LATANOPROST
     Indication: Product used for unknown indication
     Dosage: 1 DOSAGE FORM, ONCE A DAY
     Route: 065
     Dates: start: 20210721
  9. ACETAMINOPHEN [Concomitant]
     Active Substance: ACETAMINOPHEN
     Indication: Product used for unknown indication
     Dosage: 2 DOSAGE FORM(EVERY 4-6 HOURS UP TO FOUR TIME...)
     Route: 065
     Dates: start: 20180328
  10. ALBUTEROL [Concomitant]
     Active Substance: ALBUTEROL
     Indication: Product used for unknown indication
     Dosage: 2 DOSAGE FORM, FOUR TIMES/DAY(PRN)
     Route: 055
     Dates: start: 20110322
  11. THEICAL D3 [Concomitant]
     Indication: Product used for unknown indication
     Dosage: 1 DOSAGE FORM, ONCE A DAY
     Route: 065
     Dates: start: 20200615
  12. CARBOMER [Concomitant]
     Active Substance: CARBOMER
     Indication: Product used for unknown indication
     Dosage: 1 DOSAGE FORM, ONCE A DAY(AT NIGHT)
     Route: 065
     Dates: start: 20170320

REACTIONS (4)
  - Dizziness [Recovering/Resolving]
  - Joint swelling [Unknown]
  - Dyspepsia [Unknown]
  - Oral mucosal discolouration [Unknown]

NARRATIVE: CASE EVENT DATE: 20220708
